FAERS Safety Report 5014483-X (Version None)
Quarter: 2006Q2

REPORT INFORMATION
  Report Type: 
  Country: None (occurrence: None)
  Receive Date: 20060525
  Receipt Date: 20060515
  Transmission Date: 20061013
  Serious: Yes (Disabling)
  Sender: FDA-Public Use
  Company Number: 2006053965

PATIENT
  Age: 16 Year
  Sex: Male

DRUGS (2)
  1. ZITHROMAX [Suspect]
     Indication: BRONCHITIS
     Dates: start: 20001001
  2. CECLOR [Concomitant]

REACTIONS (7)
  - BLADDER DISTENSION [None]
  - COUGH [None]
  - DRUG INEFFECTIVE [None]
  - DYSGEUSIA [None]
  - IRRITABLE BOWEL SYNDROME [None]
  - POLLAKIURIA [None]
  - VIRAL INFECTION [None]
